FAERS Safety Report 15127103 (Version 2)
Quarter: 2018Q3

REPORT INFORMATION
  Report Type: Report from Study
  Country: US (occurrence: US)
  Receive Date: 20180710
  Receipt Date: 20180720
  Transmission Date: 20181010
  Serious: Yes (Hospitalization)
  Sender: FDA-Public Use
  Company Number: US-PFIZER INC-2018268655

PATIENT
  Age: 49 Year
  Sex: Male
  Weight: 77.1 kg

DRUGS (11)
  1. CETUXIMAB. [Suspect]
     Active Substance: CETUXIMAB
     Indication: LIP SQUAMOUS CELL CARCINOMA
     Dosage: 250 MG/M2, WEEKLY
     Route: 042
     Dates: start: 20180531, end: 20180621
  2. FOLIC ACID. [Concomitant]
     Active Substance: FOLIC ACID
     Dosage: UNK
  3. METOCLOPRAMIDE. [Concomitant]
     Active Substance: METOCLOPRAMIDE
     Dosage: UNK
  4. ACETAMINOPHEN. [Concomitant]
     Active Substance: ACETAMINOPHEN
     Dosage: UNK
  5. PALBOCICLIB [Suspect]
     Active Substance: PALBOCICLIB
     Indication: LIP SQUAMOUS CELL CARCINOMA
     Dosage: 125 MG, QD DAYS 1?21
     Route: 048
     Dates: start: 20180531, end: 20180620
  6. LEVOTHYROXINE. [Concomitant]
     Active Substance: LEVOTHYROXINE
     Dosage: UNK
  7. OXYCODONE [Concomitant]
     Active Substance: OXYCODONE
     Dosage: UNK
  8. FAMOTIDINE. [Concomitant]
     Active Substance: FAMOTIDINE
     Dosage: UNK
  9. PREDNISONE. [Concomitant]
     Active Substance: PREDNISONE
     Dosage: UNK
  10. CLONAZEPAM. [Concomitant]
     Active Substance: CLONAZEPAM
     Dosage: UNK
  11. GABAPENTIN. [Concomitant]
     Active Substance: GABAPENTIN
     Dosage: UNK

REACTIONS (1)
  - Wound infection [Recovering/Resolving]

NARRATIVE: CASE EVENT DATE: 20180628
